FAERS Safety Report 7161844-9 (Version None)
Quarter: 2010Q4

REPORT INFORMATION
  Report Type: 
  Country: None (occurrence: None)
  Receive Date: 20101215
  Receipt Date: 20100706
  Transmission Date: 20110411
  Serious: Yes (Other)
  Sender: FDA-Public Use
  Company Number: US-PFIZER INC-2010084886

PATIENT
  Sex: Male
  Weight: 96.145 kg

DRUGS (4)
  1. LYRICA [Suspect]
     Indication: INTERVERTEBRAL DISC DEGENERATION
     Dosage: 75 MG, 2X/DAY
     Route: 048
     Dates: start: 20100701, end: 20100706
  2. AMOXICILLIN [Concomitant]
     Indication: EAR INFECTION
     Dosage: UNK
  3. ULTRAM [Concomitant]
     Indication: BACK DISORDER
     Dosage: UNK
  4. ULTRAM [Concomitant]
     Indication: NERVE INJURY

REACTIONS (1)
  - HAEMATOCHEZIA [None]
